FAERS Safety Report 20857658 (Version 13)
Quarter: 2024Q4

REPORT INFORMATION
  Report Type: Spontaneous
  Country: CA (occurrence: CA)
  Receive Date: 20220521
  Receipt Date: 20241204
  Transmission Date: 20250115
  Serious: Yes (Other)
  Sender: CELLTRION
  Company Number: CA-CELLTRION INC.-2021CA017688

PATIENT

DRUGS (8)
  1. INFLECTRA [Suspect]
     Active Substance: INFLIXIMAB-DYYB
     Indication: Crohn^s disease
     Dosage: 500 MG EVERY 4 WEEKS, TREATMENT ON HOLD
     Route: 042
     Dates: start: 20210115, end: 20220408
  2. INFLECTRA [Suspect]
     Active Substance: INFLIXIMAB-DYYB
     Dosage: 500 MG EVERY 4 WEEKS
     Route: 042
     Dates: start: 20220411
  3. INFLECTRA [Suspect]
     Active Substance: INFLIXIMAB-DYYB
     Dosage: 500 MG EVERY 4 WEEKS
     Route: 042
     Dates: start: 20220625
  4. INFLECTRA [Suspect]
     Active Substance: INFLIXIMAB-DYYB
     Dosage: 500 MG EVERY 4 WEEKS
     Route: 042
     Dates: start: 20220923
  5. INFLECTRA [Suspect]
     Active Substance: INFLIXIMAB-DYYB
     Dosage: 1 DF
     Route: 042
     Dates: start: 20240705
  6. INFLECTRA [Suspect]
     Active Substance: INFLIXIMAB-DYYB
     Dosage: 1 DF, AFTER 4 WEEKS
     Route: 042
     Dates: start: 20240802
  7. INFLECTRA [Suspect]
     Active Substance: INFLIXIMAB-DYYB
     Dosage: UNK, NOT PROVIDED, EVERY 4 WEEKS (500 MG, EVERY 4 WEEK)
     Route: 042
     Dates: start: 20240829
  8. INFLECTRA [Suspect]
     Active Substance: INFLIXIMAB-DYYB
     Dosage: 500 MG EVERY 4 WEEKS
     Route: 042

REACTIONS (7)
  - Gastrointestinal carcinoma [Not Recovered/Not Resolved]
  - Condition aggravated [Recovering/Resolving]
  - Urinary tract infection [Not Recovered/Not Resolved]
  - Tooth infection [Unknown]
  - Off label use [Unknown]
  - Intentional product use issue [Unknown]
  - Off label use [Unknown]

NARRATIVE: CASE EVENT DATE: 20210115
